FAERS Safety Report 6272359-4 (Version None)
Quarter: 2009Q3

REPORT INFORMATION
  Report Type: 
  Country: None (occurrence: None)
  Receive Date: 20090713
  Receipt Date: 20081210
  Transmission Date: 20100115
  Serious: No
  Sender: FDA-Public Use
  Company Number: 2008BM000248

PATIENT
  Age: 29 Year
  Sex: Female
  Weight: 112 kg

DRUGS (3)
  1. KUVAN [Suspect]
     Indication: PHENYLKETONURIA
     Dosage: 800 MG; BID, 1600 MG; QD, 800 MG; BID
     Dates: start: 20071001, end: 20071101
  2. KUVAN [Suspect]
     Indication: PHENYLKETONURIA
     Dosage: 800 MG; BID, 1600 MG; QD, 800 MG; BID
     Dates: start: 20071101, end: 20080401
  3. KUVAN [Suspect]
     Indication: PHENYLKETONURIA
     Dosage: 800 MG; BID, 1600 MG; QD, 800 MG; BID
     Dates: start: 20080401

REACTIONS (3)
  - DECREASED APPETITE [None]
  - DYSPEPSIA [None]
  - NAUSEA [None]
